FAERS Safety Report 7197769-2 (Version None)
Quarter: 2010Q4

REPORT INFORMATION
  Report Type: 
  Country: None (occurrence: None)
  Receive Date: 20101213
  Receipt Date: 20101124
  Transmission Date: 20110411
  Serious: Yes (Hospitalization)
  Sender: FDA-Public Use
  Company Number: 2010US005297

PATIENT
  Age: 84 Year
  Sex: Male
  Weight: 74.8 kg

DRUGS (1)
  1. ALOXI [Suspect]
     Indication: PROPHYLAXIS OF NAUSEA AND VOMITING
     Dosage: 0.25MG, SINGLE, INTRAVENOUS
     Route: 042
     Dates: start: 20101105, end: 20101105

REACTIONS (2)
  - BACK PAIN [None]
  - CARDIAC ARREST [None]
